FAERS Safety Report 6143395-3 (Version None)
Quarter: 2009Q2

REPORT INFORMATION
  Report Type: 
  Country: None (occurrence: None)
  Receive Date: 20090403
  Receipt Date: 20090324
  Transmission Date: 20091009
  Serious: Yes (Hospitalization, Other)
  Sender: FDA-Public Use
  Company Number: JP-PFIZER INC-2009177946

PATIENT

DRUGS (5)
  1. CARDENALIN [Suspect]
     Dosage: UNK
     Dates: end: 20090311
  2. ATELEC [Suspect]
     Dosage: 10 MG, 1X/DAY
     Dates: start: 20070201
  3. MICARDIS [Suspect]
     Dosage: 40 MG, 1X/DAY
     Dates: start: 20070801
  4. CIMETIDINE [Concomitant]
     Dosage: UNK
     Dates: end: 20090216
  5. ANAFRANIL [Concomitant]
     Dosage: UNK

REACTIONS (12)
  - ANTINEUTROPHIL CYTOPLASMIC ANTIBODY INCREASED [None]
  - ANTINUCLEAR ANTIBODY INCREASED [None]
  - BLOOD LACTATE DEHYDROGENASE INCREASED [None]
  - CARBOHYDRATE ANTIGEN 19-9 [None]
  - CARCINOEMBRYONIC ANTIGEN INCREASED [None]
  - CYTOMEGALOVIRUS ANTIBODY POSITIVE [None]
  - EPSTEIN-BARR VIRUS ANTIBODY POSITIVE [None]
  - INTERLEUKIN-2 RECEPTOR INCREASED [None]
  - INTERSTITIAL LUNG DISEASE [None]
  - LUNG DISORDER [None]
  - LYMPHOCYTE STIMULATION TEST POSITIVE [None]
  - RHEUMATOID FACTOR INCREASED [None]
